FAERS Safety Report 4457006-6 (Version None)
Quarter: 2004Q3

REPORT INFORMATION
  Report Type: 
  Country: None (occurrence: None)
  Receive Date: 20040923
  Receipt Date: 20040527
  Transmission Date: 20050211
  Serious: Yes (Other)
  Sender: FDA-Public Use
  Company Number: JP-GLAXOSMITHKLINE-B0333965A

PATIENT
  Age: 66 Year
  Sex: Female
  Weight: 40 kg

DRUGS (11)
  1. ALKERAN [Suspect]
     Indication: MULTIPLE MYELOMA
     Dosage: 130MG TWICE PER DAY
     Route: 042
     Dates: start: 20040510, end: 20040510
  2. CRAVIT [Suspect]
     Dosage: 100MG THREE TIMES PER DAY
     Route: 048
     Dates: start: 20040430, end: 20040515
  3. ROHYPNOL [Suspect]
     Indication: INSOMNIA
     Dosage: 1MG PER DAY
     Route: 048
     Dates: start: 20040510, end: 20040510
  4. FENTANYL [Suspect]
     Indication: BACK PAIN
     Dosage: 5MG PER DAY
     Route: 062
     Dates: start: 20031121
  5. KYTRIL [Concomitant]
     Indication: VOMITING
     Dosage: 6MG PER DAY
     Route: 042
     Dates: start: 20040510, end: 20040501
  6. LASIX [Concomitant]
     Dosage: 60MG PER DAY
     Route: 042
     Dates: start: 20040510, end: 20040510
  7. NEUTROGIN [Concomitant]
  8. ZOVIRAX [Concomitant]
     Dosage: 1000MG PER DAY
     Route: 048
     Dates: start: 20040507, end: 20040524
  9. HARTMANNS [Concomitant]
     Indication: RENAL DISORDER
     Dosage: 2000ML PER DAY
     Route: 042
     Dates: start: 20040509, end: 20040512
  10. BAKTAR [Concomitant]
     Dosage: 1600MG PER DAY
     Route: 048
     Dates: start: 20040430, end: 20040521
  11. CHEMOTHERAPY [Concomitant]
     Route: 065

REACTIONS (3)
  - DELIRIUM [None]
  - HYPERPHOSPHATAEMIA [None]
  - MYOCLONUS [None]
